FAERS Safety Report 17511097 (Version 1)
Quarter: 2020Q1

REPORT INFORMATION
  Report Type: Spontaneous
  Country: FR (occurrence: FR)
  Receive Date: 20200306
  Receipt Date: 20200306
  Transmission Date: 20200409
  Serious: Yes (Other)
  Sender: FDA-Public Use
  Company Number: FR-GILEAD-2020-0453959

PATIENT
  Age: 34 Year
  Sex: Female
  Weight: 94 kg

DRUGS (7)
  1. ZOPICLONE [Concomitant]
     Active Substance: ZOPICLONE
     Dosage: 7.5 MG, QD
     Route: 048
     Dates: start: 20190204
  2. TERCIAN [CYAMEMAZINE] [Concomitant]
     Active Substance: CYAMEMAZINE
     Dosage: 20 GTT DROPS, QD
     Route: 048
     Dates: start: 201902
  3. RIVOTRIL [Concomitant]
     Active Substance: CLONAZEPAM
     Dosage: 11 GTT DROPS, QD
     Route: 048
     Dates: start: 2017
  4. ANAFRANIL [Concomitant]
     Active Substance: CLOMIPRAMINE HYDROCHLORIDE
     Dosage: 75 MG, QD
     Route: 048
     Dates: start: 2017
  5. KENALCOL [Interacting]
     Active Substance: BENZALKONIUM CHLORIDE\SALICYLIC ACID\TRIAMCINOLONE ACETONIDE
     Indication: SKIN DISCOLOURATION
     Dosage: UNK
     Route: 003
     Dates: start: 2016, end: 202002
  6. GENVOYA [Suspect]
     Active Substance: COBICISTAT\ELVITEGRAVIR\EMTRICITABINE\TENOFOVIR ALAFENAMIDE FUMARATE
     Indication: HIV INFECTION
     Dosage: 150 MG/150 MG/200 MG/10 MG, QD
     Route: 048
     Dates: start: 201703, end: 20200211
  7. PROPIONATE [SODIUM PROPIONATE] [Interacting]
     Active Substance: SODIUM PROPIONATE
     Indication: SKIN DISCOLOURATION
     Dosage: UNK
     Route: 003
     Dates: start: 2016, end: 202002

REACTIONS (1)
  - Cushing^s syndrome [Unknown]

NARRATIVE: CASE EVENT DATE: 2019
